FAERS Safety Report 25280489 (Version 1)
Quarter: 2025Q2

REPORT INFORMATION
  Report Type: Spontaneous
  Country: US (occurrence: US)
  Receive Date: 20250508
  Receipt Date: 20250508
  Transmission Date: 20250716
  Serious: No
  Sender: ABBVIE
  Company Number: US-ABBVIE-6262506

PATIENT

DRUGS (1)
  1. RISEDRONATE SODIUM [Suspect]
     Active Substance: RISEDRONATE SODIUM
     Indication: Bone disorder
     Route: 048

REACTIONS (5)
  - Pain in extremity [Unknown]
  - Back pain [Unknown]
  - Pain in jaw [Unknown]
  - Pain [Unknown]
  - Pyrexia [Unknown]
